FAERS Safety Report 6011703-X (Version None)
Quarter: 2008Q4

REPORT INFORMATION
  Report Type: 
  Country: None (occurrence: None)
  Receive Date: 20081218
  Receipt Date: 19910108
  Transmission Date: 20090506
  Serious: Yes (Death, Other)
  Sender: FDA-Public Use
  Company Number: DE-ROCHE-900316121005

PATIENT
  Sex: Male
  Weight: 100 kg

DRUGS (25)
  1. ROCEPHIN [Suspect]
     Indication: PULMONARY SEPSIS
     Route: 042
     Dates: start: 19900706, end: 19900710
  2. MIDAZOLAM HCL [Interacting]
     Indication: SEDATION
     Route: 042
     Dates: start: 19900705, end: 19900717
  3. MIDAZOLAM HCL [Interacting]
     Route: 042
     Dates: start: 19900726, end: 19900727
  4. FENTANYL-100 [Interacting]
     Route: 042
     Dates: start: 19900705, end: 19900717
  5. ETOMIDAT [Interacting]
     Route: 042
     Dates: start: 19900706, end: 19900706
  6. ACETYLSALICYLIC ACID [Concomitant]
     Indication: THROMBOSIS PROPHYLAXIS
     Route: 048
     Dates: start: 19900701, end: 19900725
  7. CLORAZEPATE DIPOTASSIUM [Concomitant]
     Indication: SEDATION
     Route: 048
     Dates: start: 19900701, end: 19900706
  8. RIOPAN [Concomitant]
     Route: 048
     Dates: start: 19900701, end: 19900706
  9. LASIX [Concomitant]
     Route: 042
     Dates: start: 19900701, end: 19900727
  10. ADALAT - SLOW RELEASE [Concomitant]
     Indication: HYPERTENSION
     Route: 048
     Dates: start: 19900701, end: 19900705
  11. MONO MACK [Concomitant]
     Indication: MYOCARDIAL INFARCTION
     Route: 048
     Dates: start: 19900703, end: 19900705
  12. SOTALEX [Concomitant]
     Route: 048
     Dates: start: 19900704, end: 19900705
  13. HALDOL [Concomitant]
     Route: 048
     Dates: start: 19900704, end: 19900705
  14. KALIUMKLORID [Concomitant]
     Route: 042
     Dates: start: 19900702, end: 19900727
  15. HEPARIN [Concomitant]
     Indication: THROMBOSIS PROPHYLAXIS
     Route: 042
     Dates: start: 19900701, end: 19900727
  16. GASTROZEPIN [Concomitant]
     Route: 042
     Dates: start: 19900701, end: 19900727
  17. DIGITOXIN TAB [Concomitant]
     Indication: TACHYARRHYTHMIA
     Route: 042
     Dates: start: 19900705, end: 19900727
  18. DIGITOXIN TAB [Concomitant]
     Route: 042
     Dates: start: 19900705, end: 19900705
  19. DOPAMINE HYDROCHLORIDE [Concomitant]
     Route: 042
     Dates: start: 19900705, end: 19900725
  20. DOPAMINE HYDROCHLORIDE [Concomitant]
     Route: 042
     Dates: start: 19900726
  21. DOBUTREX [Concomitant]
     Route: 042
     Dates: start: 19900705, end: 19900719
  22. NOVADRAL [Concomitant]
     Indication: HYPOTENSION
     Route: 042
     Dates: start: 19900706, end: 19900709
  23. RYTMONORM [Concomitant]
     Route: 042
     Dates: start: 19900709, end: 19900710
  24. GENTAMICIN [Concomitant]
     Indication: SEPSIS
     Route: 042
     Dates: start: 19900706, end: 19900715
  25. AT-10 [Concomitant]
     Indication: SEPSIS
     Route: 042
     Dates: start: 19900706, end: 19900706

REACTIONS (3)
  - DISEASE PROGRESSION [None]
  - DRUG INTERACTION [None]
  - EXTENSOR PLANTAR RESPONSE [None]
